FAERS Safety Report 8880909 (Version 1)
Quarter: 2012Q4

REPORT INFORMATION
  Report Type: 
  Country: CH (occurrence: CH)
  Receive Date: 20121101
  Receipt Date: 20121101
  Transmission Date: 20130627
  Serious: Yes (Other)
  Sender: FDA-Public Use
  Company Number: CH-ASTRAZENECA-2012SE81458

PATIENT
  Age: 77 Year
  Sex: Female

DRUGS (5)
  1. ROPIVACAINE [Suspect]
     Indication: LOCAL ANAESTHESIA
     Dosage: at rate of 5 ml/hour
  2. MIDAZOLAM [Concomitant]
     Indication: PREMEDICATION
     Route: 048
  3. PARACETAMOL [Concomitant]
     Indication: PREMEDICATION
     Route: 048
  4. MEPIVACAINE [Concomitant]
     Indication: NERVE BLOCK
     Route: 053
  5. DICLOFENAC [Concomitant]
     Route: 048

REACTIONS (2)
  - Gait disturbance [Recovered/Resolved]
  - Foot fracture [Recovered/Resolved]
